FAERS Safety Report 10855043 (Version 1)
Quarter: 2015Q1

REPORT INFORMATION
  Report Type: Report from Study
  Country: US (occurrence: US)
  Receive Date: 20150223
  Receipt Date: 20150223
  Transmission Date: 20150721
  Serious: Yes (Hospitalization)
  Sender: FDA-Public Use
  Company Number: US-NOVOPROD-427366

PATIENT
  Age: 11 Year
  Sex: Male
  Weight: 96 kg

DRUGS (6)
  1. RANITIDINE [Concomitant]
     Active Substance: RANITIDINE\RANITIDINE HYDROCHLORIDE
     Indication: PRODUCT USED FOR UNKNOWN INDICATION
     Dosage: UNK
  2. LEVOTHYROXINE [Concomitant]
     Active Substance: LEVOTHYROXINE
     Indication: PRODUCT USED FOR UNKNOWN INDICATION
     Dosage: UNK
  3. NORDITROPIN [Suspect]
     Active Substance: SOMATROPIN
     Indication: HYPOPITUITARISM
     Dosage: 2 MG, QD
     Route: 058
     Dates: start: 20140819, end: 2014
  4. HYDROCORTISONE. [Concomitant]
     Active Substance: HYDROCORTISONE
     Indication: PRODUCT USED FOR UNKNOWN INDICATION
     Dosage: UNK
  5. NORDITROPIN [Suspect]
     Active Substance: SOMATROPIN
     Indication: DWARFISM
     Dosage: 1 MG, QD
     Route: 058
     Dates: start: 2014, end: 20141023
  6. VITAMIN D                          /00107901/ [Concomitant]
     Active Substance: ERGOCALCIFEROL
     Indication: PRODUCT USED FOR UNKNOWN INDICATION
     Dosage: UNK

REACTIONS (5)
  - Nausea [Unknown]
  - Listless [Not Recovered/Not Resolved]
  - Headache [Recovered/Resolved]
  - Pain [Unknown]
  - Headache [Recovered/Resolved]

NARRATIVE: CASE EVENT DATE: 2014
